FAERS Safety Report 10166055 (Version 1)
Quarter: 2014Q2

REPORT INFORMATION
  Report Type: Spontaneous
  Country: US (occurrence: US)
  Receive Date: 20140512
  Receipt Date: 20140512
  Transmission Date: 20141212
  Serious: Yes (Other)
  Sender: FDA-Public Use
  Company Number: 2014SP002498

PATIENT
  Age: 31 Year
  Sex: Female

DRUGS (26)
  1. DEXAMETHASONE [Suspect]
     Indication: ACUTE LYMPHOCYTIC LEUKAEMIA
     Route: 042
     Dates: start: 20140303, end: 20140303
  2. DEXAMETHASONE [Suspect]
     Indication: ACUTE LYMPHOCYTIC LEUKAEMIA
     Route: 042
     Dates: start: 20140102, end: 20140102
  3. DOXORUBICIN [Suspect]
     Indication: ACUTE LYMPHOCYTIC LEUKAEMIA
     Route: 042
     Dates: start: 20140228, end: 20140303
  4. MESNA [Suspect]
     Indication: ACUTE LYMPHOCYTIC LEUKAEMIA
     Route: 042
  5. CYCLOPHOSPHAMIDE [Suspect]
     Indication: ACUTE LYMPHOCYTIC LEUKAEMIA
     Route: 042
     Dates: start: 20140303, end: 20140303
  6. CYCLOPHOSPHAMIDE [Suspect]
     Indication: ACUTE LYMPHOCYTIC LEUKAEMIA
     Route: 042
     Dates: start: 20140102, end: 20140102
  7. VINCRISTINE [Suspect]
     Indication: ACUTE LYMPHOCYTIC LEUKAEMIA
     Route: 042
     Dates: start: 20140303, end: 20140303
  8. VINCRISTINE [Suspect]
     Indication: ACUTE LYMPHOCYTIC LEUKAEMIA
     Route: 042
     Dates: start: 20140102, end: 20140102
  9. INOTUZUMAB [Suspect]
     Indication: ACUTE LYMPHOCYTIC LEUKAEMIA
     Route: 042
     Dates: start: 20140104, end: 20140104
  10. INOTUZUMAB [Suspect]
     Indication: ACUTE LYMPHOCYTIC LEUKAEMIA
     Route: 042
     Dates: start: 20140302, end: 20140302
  11. ATOVAQUONE [Concomitant]
  12. CASPOFUNGIN [Concomitant]
  13. LEVOFLOXACIN [Concomitant]
  14. MAGNESIUM [Concomitant]
  15. MULTIVITAMINS [Concomitant]
  16. PROTONIX [Concomitant]
  17. PREDNISONE [Concomitant]
  18. TACROLIMUS [Concomitant]
  19. URSODEOXYCHOLIC ACID [Concomitant]
  20. VALACICLOVIR HYDROCHLORIDE [Concomitant]
  21. ONDANSETRON [Concomitant]
  22. OXYCODONE [Concomitant]
  23. POLYETHYLENE GLYCOL [Concomitant]
  24. PROMETHAZINE [Concomitant]
  25. SUCRALFATE [Concomitant]
  26. ZOLPIDEM TARTRATE [Concomitant]

REACTIONS (3)
  - Venoocclusive disease [Not Recovered/Not Resolved]
  - Hyperbilirubinaemia [Not Recovered/Not Resolved]
  - Acute graft versus host disease [Not Recovered/Not Resolved]
